FAERS Safety Report 8894572 (Version 1)
Quarter: 2012Q4

REPORT INFORMATION
  Report Type: 
  Country: HU (occurrence: US)
  Receive Date: 20121108
  Receipt Date: 20121108
  Transmission Date: 20130627
  Serious: Yes (Other)
  Sender: FDA-Public Use
  Company Number: US-AMGEN-USASP2012069569

PATIENT
  Age: 16 Year
  Sex: Male

DRUGS (4)
  1. CINACALCET HCL [Suspect]
     Indication: HYPERPARATHYROIDISM TERTIARY
     Dosage: 90 mg, bid
  2. SEVELAMER [Concomitant]
     Dosage: 800 mg, four pills three times a day
  3. VITAMIN D2 [Concomitant]
  4. CALCITRIOL [Concomitant]
     Dosage: 0.5 mug, qd

REACTIONS (4)
  - Exostosis [Unknown]
  - Hungry bone syndrome [Unknown]
  - Fibrous dysplasia of bone [Unknown]
  - Drug ineffective [Unknown]
